FAERS Safety Report 7319111-6 (Version None)
Quarter: 2011Q1

REPORT INFORMATION
  Report Type: 
  Country: None (occurrence: None)
  Receive Date: 20110228
  Receipt Date: 20110217
  Transmission Date: 20110831
  Serious: Yes (Hospitalization)
  Sender: FDA-Public Use
  Company Number: JP-NOVOPROD-238852

PATIENT
  Age: 58 Year
  Sex: Male
  Weight: 36.3 kg

DRUGS (7)
  1. NOVOLIN R [Suspect]
     Indication: INSULIN-REQUIRING TYPE 2 DIABETES MELLITUS
     Dosage: 3 U, TID
     Route: 058
     Dates: start: 20040715, end: 20040812
  2. HUMACART R [Concomitant]
     Dosage: 3 TIMES DAILY
  3. PENFILL N CHU [Suspect]
     Indication: TYPE 2 DIABETES MELLITUS
     Dosage: 16 U, QD
     Route: 058
  4. PENFILL N CHU [Suspect]
     Dosage: 10 + 4 UNITS
     Route: 058
     Dates: start: 20010501
  5. HUMALOG [Concomitant]
     Dosage: 3 TIMES DAILY BEFORE EACH MEAL
     Dates: start: 20040812
  6. HUMACART N [Concomitant]
  7. NOVOLIN N [Suspect]
     Indication: INSULIN-REQUIRING TYPE 2 DIABETES MELLITUS
     Dosage: 4 U, QD
     Route: 058
     Dates: start: 20040715, end: 20040812

REACTIONS (3)
  - KETOSIS [None]
  - HEPATIC FUNCTION ABNORMAL [None]
  - BLOOD GLUCOSE INCREASED [None]
